FAERS Safety Report 8370786-2 (Version None)
Quarter: 2012Q2

REPORT INFORMATION
  Report Type: 
  Country: None (occurrence: None)
  Receive Date: 20120518
  Receipt Date: 20120403
  Transmission Date: 20120825
  Serious: Yes (Hospitalization)
  Sender: FDA-Public Use
  Company Number: US-ALEXION-A201200003

PATIENT
  Sex: Male

DRUGS (2)
  1. SOLIRIS [Suspect]
     Indication: PAROXYSMAL NOCTURNAL HAEMOGLOBINURIA
     Dosage: 900 MG, Q2W
     Route: 042
     Dates: start: 20070101
  2. MENOMUNE-A/C/Y/W-135 [Concomitant]
     Indication: IMMUNISATION
     Dosage: UNK
     Dates: start: 20120320, end: 20120320

REACTIONS (2)
  - CHROMATURIA [None]
  - VIRAL INFECTION [None]
